FAERS Safety Report 12596585 (Version 2)
Quarter: 2016Q4

REPORT INFORMATION
  Report Type: Report from Study
  Country: US (occurrence: US)
  Receive Date: 20160726
  Receipt Date: 20161107
  Transmission Date: 20170207
  Serious: Yes (Death, Hospitalization, Other)
  Sender: FDA-Public Use
  Company Number: US-BAYER-2016-133238

PATIENT
  Age: 81 Year
  Sex: Male
  Weight: 67.12 kg

DRUGS (4)
  1. ADEMPAS [Suspect]
     Active Substance: RIOCIGUAT
     Indication: PULMONARY ARTERIAL HYPERTENSION
     Dosage: 1 MG, TID
     Route: 048
  2. APIXABAN [Concomitant]
     Active Substance: APIXABAN
  3. OPSUMIT [Concomitant]
     Active Substance: MACITENTAN
  4. ADEMPAS [Suspect]
     Active Substance: RIOCIGUAT
     Indication: PULMONARY ARTERIAL HYPERTENSION
     Dosage: UNK
     Dates: start: 20160617

REACTIONS (20)
  - Abasia [Unknown]
  - Respiratory failure [None]
  - Cardiomyopathy [None]
  - Dizziness postural [Unknown]
  - Drug dose omission [Unknown]
  - Coronary artery disease [None]
  - Left ventricular failure [None]
  - Death [Fatal]
  - General physical health deterioration [Unknown]
  - Osteoarthritis [None]
  - Intestinal obstruction [Unknown]
  - Abdominal pain [None]
  - Chronic obstructive pulmonary disease [None]
  - Decubitus ulcer [Unknown]
  - Hypotension [None]
  - Atrial fibrillation [Unknown]
  - Cardiac failure congestive [None]
  - Pulmonary hypertension [None]
  - Dizziness [Unknown]
  - Hernia obstructive [Recovered/Resolved]

NARRATIVE: CASE EVENT DATE: 2016
